FAERS Safety Report 12266230 (Version 1)
Quarter: 2016Q2

REPORT INFORMATION
  Report Type: Spontaneous
  Country: None (occurrence: None)
  Receive Date: 20160413
  Receipt Date: 20160413
  Transmission Date: 20160815
  Serious: No
  Sender: FDA-Public Use
  Company Number: None

PATIENT
  Age: 50 Year
  Sex: Male

DRUGS (1)
  1. GLEEVEC [Suspect]
     Active Substance: IMATINIB MESYLATE
     Route: 048

REACTIONS (4)
  - Memory impairment [None]
  - Hypoacusis [None]
  - Nausea [None]
  - Visual impairment [None]

NARRATIVE: CASE EVENT DATE: 20150512
